FAERS Safety Report 5757837-6 (Version None)
Quarter: 2008Q2

REPORT INFORMATION
  Report Type: 
  Country: None (occurrence: None)
  Receive Date: 20080603
  Receipt Date: 20080527
  Transmission Date: 20081010
  Serious: Yes (Hospitalization)
  Sender: FDA-Public Use
  Company Number: PHHY2008GB09527

PATIENT
  Sex: Female

DRUGS (3)
  1. CLOZARIL [Suspect]
     Dosage: 650MG/DAY
     Dates: start: 20041113
  2. DIAZEPAM [Suspect]
  3. OLANZAPINE [Suspect]

REACTIONS (2)
  - MULTIPLE DRUG OVERDOSE [None]
  - SOMNOLENCE [None]
